FAERS Safety Report 18673215 (Version 6)
Quarter: 2021Q3

REPORT INFORMATION
  Report Type: Report from Study
  Country: FR (occurrence: FR)
  Receive Date: 20201228
  Receipt Date: 20210721
  Transmission Date: 20211014
  Serious: Yes (Other)
  Sender: FDA-Public Use
  Company Number: FR-MYLANLABS-2020M1103984

PATIENT
  Age: 71 Year
  Sex: Male
  Weight: 107 kg

DRUGS (23)
  1. UPTRAVI [Interacting]
     Active Substance: SELEXIPAG
     Indication: PULMONARY ARTERIAL HYPERTENSION
     Dosage: 200 MCG, QD
     Route: 048
     Dates: start: 20200226
  2. UPTRAVI [Interacting]
     Active Substance: SELEXIPAG
     Dosage: 400 MICROGRAM, QD (200 MCG, BID)
     Route: 048
     Dates: start: 20200305
  3. UPTRAVI [Interacting]
     Active Substance: SELEXIPAG
     Dosage: 1600 MILLIGRAM
     Route: 048
     Dates: start: 20201204
  4. OXYGEN. [Suspect]
     Active Substance: OXYGEN
     Indication: PRODUCT USED FOR UNKNOWN INDICATION
     Dosage: UNK
     Route: 055
  5. UPTRAVI [Interacting]
     Active Substance: SELEXIPAG
     Dosage: 2000 MILLIGRAM, QD (1000 MG, BID)
     Route: 048
     Dates: start: 20201127
  6. UPTRAVI [Interacting]
     Active Substance: SELEXIPAG
     Dosage: 1200 MILLIGRAM
     Route: 048
     Dates: start: 20201211
  7. TADALAFIL. [Concomitant]
     Active Substance: TADALAFIL
     Indication: PULMONARY ARTERIAL HYPERTENSION
     Dosage: UNK
  8. AMBRISENTAN [Concomitant]
     Active Substance: AMBRISENTAN
     Indication: PULMONARY ARTERIAL HYPERTENSION
     Dosage: UNK
  9. UPTRAVI [Interacting]
     Active Substance: SELEXIPAG
     Dosage: 2000 MICROGRAM, QD (1000 MCG, BID)
     Route: 048
     Dates: start: 20200401
  10. UPTRAVI [Interacting]
     Active Substance: SELEXIPAG
     Dosage: 800 MICROGRAM, QD (400 MCG, BID)
     Route: 048
     Dates: start: 20200311
  11. UPTRAVI [Interacting]
     Active Substance: SELEXIPAG
     Dosage: 1200 MICROGRAM, QD (600 MCG, BID)
     Route: 048
     Dates: start: 20200318
  12. UPTRAVI [Interacting]
     Active Substance: SELEXIPAG
     Dosage: 2400 MICROGRAM, QD (1200 MCG, BID)
     Route: 048
     Dates: start: 20200408
  13. UPTRAVI [Interacting]
     Active Substance: SELEXIPAG
     Dosage: 1600 MILLIGRAM
     Route: 048
     Dates: start: 20201127
  14. PREVISCAN                          /00789001/ [Concomitant]
     Active Substance: FLUINDIONE
     Dosage: UNK
     Dates: start: 20200304
  15. UPTRAVI [Interacting]
     Active Substance: SELEXIPAG
     Dosage: 1600 MICROGRAM, QD (800 MCG, BID)
     Route: 048
     Dates: start: 20200325
  16. CLOPIDOGREL [Suspect]
     Active Substance: CLOPIDOGREL BISULFATE
     Indication: PRODUCT USED FOR UNKNOWN INDICATION
     Dosage: UNK
     Route: 065
  17. UPTRAVI [Interacting]
     Active Substance: SELEXIPAG
     Dosage: 2400 MICROGRAM, QD
     Route: 048
     Dates: start: 20201120
  18. UPTRAVI [Interacting]
     Active Substance: SELEXIPAG
     Dosage: 3200 MICROGRAM, QD (1600 MCG, BID)
     Route: 048
     Dates: start: 20200422
  19. UPTRAVI [Interacting]
     Active Substance: SELEXIPAG
     Dosage: 800 MILLIGRAM, QD
     Route: 048
     Dates: start: 20201218
  20. UPTRAVI [Interacting]
     Active Substance: SELEXIPAG
     Dosage: 2800 MICROGRAM, QD
     Route: 048
     Dates: start: 20201113
  21. UPTRAVI [Interacting]
     Active Substance: SELEXIPAG
     Dosage: 2800 MICROGRAM, QD (1400 MCG, BID)
     Route: 048
     Dates: start: 20200415
  22. UPTRAVI [Interacting]
     Active Substance: SELEXIPAG
     Dosage: 2800 MICROGRAM, QD
     Route: 048
     Dates: start: 20201113
  23. UPTRAVI [Interacting]
     Active Substance: SELEXIPAG
     Dosage: 400 MILLIGRAM
     Route: 048
     Dates: start: 20201225, end: 20210101

REACTIONS (12)
  - Pain in jaw [Recovering/Resolving]
  - Dyspnoea [Not Recovered/Not Resolved]
  - Product prescribing error [Recovered/Resolved]
  - International normalised ratio increased [Unknown]
  - Nasal congestion [Not Recovered/Not Resolved]
  - Dizziness [Recovered/Resolved]
  - Inappropriate schedule of product administration [Recovered/Resolved]
  - Drug interaction [Unknown]
  - Sleep disorder [Not Recovered/Not Resolved]
  - Pulmonary arterial hypertension [Unknown]
  - Dyspnoea exertional [Not Recovered/Not Resolved]
  - Nasopharyngitis [Not Recovered/Not Resolved]

NARRATIVE: CASE EVENT DATE: 202003
